FAERS Safety Report 7757847-3 (Version None)
Quarter: 2011Q3

REPORT INFORMATION
  Report Type: 
  Country: None (occurrence: None)
  Receive Date: 20110918
  Receipt Date: 20110906
  Transmission Date: 20111222
  Serious: Yes (Death)
  Sender: FDA-Public Use
  Company Number: CA-BRISTOL-MYERS SQUIBB COMPANY-16057556

PATIENT

DRUGS (4)
  1. CISPLATIN [Suspect]
     Indication: BRAIN NEOPLASM
     Dosage: INTRAVENOUS ALSO
     Route: 013
  2. CYTARABINE [Suspect]
     Indication: BRAIN NEOPLASM
     Route: 042
  3. CARMUSTINE [Suspect]
     Indication: BRAIN NEOPLASM
     Route: 013
  4. TENIPOSIDE [Suspect]
     Indication: BRAIN NEOPLASM
     Dosage: INTRAVENOUS ALSO
     Route: 013

REACTIONS (2)
  - BRAIN HERNIATION [None]
  - CAROTID ARTERY THROMBOSIS [None]
